FAERS Safety Report 4427734-7 (Version None)
Quarter: 2004Q3

REPORT INFORMATION
  Report Type: 
  Country: None (occurrence: None)
  Receive Date: 20040817
  Receipt Date: 20040816
  Transmission Date: 20050211
  Serious: Yes (Other)
  Sender: FDA-Public Use
  Company Number: US-GLAXOSMITHKLINE-A0522231A

PATIENT
  Sex: Female

DRUGS (2)
  1. NAVELBINE [Suspect]
     Dosage: 30MGM2 WEEKLY
     Route: 042
  2. HERCEPTIN [Concomitant]

REACTIONS (1)
  - CATARACT [None]
